FAERS Safety Report 6224258-1 (Version None)
Quarter: 2009Q2

REPORT INFORMATION
  Report Type: 
  Country: None (occurrence: None)
  Receive Date: 20090612
  Receipt Date: 20090316
  Transmission Date: 20091009
  Serious: No
  Sender: FDA-Public Use
  Company Number: US-ABBOTT-09P-163-0563027-00

PATIENT
  Sex: Female
  Weight: 59.928 kg

DRUGS (8)
  1. HUMIRA [Suspect]
     Indication: RHEUMATOID ARTHRITIS
     Route: 058
     Dates: start: 20070201
  2. ARAVA [Concomitant]
     Indication: RHEUMATOID ARTHRITIS
  3. PLAQUENIL [Concomitant]
     Indication: RHEUMATOID ARTHRITIS
  4. LEXAPRO [Concomitant]
     Indication: DEPRESSION
  5. THYROID TAB [Concomitant]
     Indication: HYPOTHYROIDISM
  6. CLONAZEPAM [Concomitant]
     Indication: SLEEP DISORDER
  7. VITAMINS [Concomitant]
     Indication: ROUTINE HEALTH MAINTENANCE
  8. MIRAPEX [Concomitant]
     Indication: RESTLESS LEGS SYNDROME

REACTIONS (4)
  - COUGH [None]
  - NASOPHARYNGITIS [None]
  - PAIN [None]
  - RHINORRHOEA [None]
